FAERS Safety Report 23633987 (Version 1)
Quarter: 2024Q1

REPORT INFORMATION
  Report Type: Spontaneous
  Country: IE (occurrence: IE)
  Receive Date: 20240314
  Receipt Date: 20240314
  Transmission Date: 20240409
  Serious: Yes (Hospitalization, Other)
  Sender: FDA-Public Use
  Company Number: IE-MYLANLABS-2024M1022730

PATIENT
  Sex: Male

DRUGS (2)
  1. CLOZARIL [Suspect]
     Active Substance: CLOZAPINE
     Indication: Schizophrenia
     Dosage: 225 MILLIGRAM, QD (ONCE DAILY)
     Route: 048
     Dates: start: 20240105, end: 20240127
  2. LORAZEPAM [Suspect]
     Active Substance: LORAZEPAM
     Dosage: 1.5 MILLIGRAM, QD
     Route: 065

REACTIONS (4)
  - Presyncope [Unknown]
  - Cardiomyopathy [Unknown]
  - Troponin increased [Unknown]
  - Hypotension [Unknown]
